FAERS Safety Report 14624524 (Version 1)
Quarter: 2018Q1

REPORT INFORMATION
  Report Type: Spontaneous
  Country: US (occurrence: US)
  Receive Date: 20180311
  Receipt Date: 20180311
  Transmission Date: 20180509
  Serious: Yes (Hospitalization, Disabling)
  Sender: FDA-Public Use
  Company Number: None

PATIENT
  Age: 37 Year
  Sex: Male
  Weight: 78.75 kg

DRUGS (3)
  1. FLECENAIDE [Suspect]
     Active Substance: FLECAINIDE
     Indication: ATRIAL FIBRILLATION
     Dosage: ?          QUANTITY:1 TABLET(S);?
     Route: 048
     Dates: start: 20171120, end: 20180311
  2. BABY ASPIRIN [Concomitant]
     Active Substance: ASPIRIN
  3. ATAVAN [Concomitant]

REACTIONS (3)
  - Asthenia [None]
  - Nerve injury [None]
  - Hypoaesthesia [None]

NARRATIVE: CASE EVENT DATE: 20180307
